FAERS Safety Report 19437715 (Version 1)
Quarter: 2021Q2

REPORT INFORMATION
  Report Type: Spontaneous
  Country: CA (occurrence: CA)
  Receive Date: 20210618
  Receipt Date: 20210618
  Transmission Date: 20210717
  Serious: Yes (Hospitalization, Disabling)
  Sender: FDA-Public Use
  Company Number: CA-ROCHE-2843330

PATIENT
  Age: 41 Year
  Sex: Female
  Weight: 90 kg

DRUGS (72)
  1. RITUXIMAB. [Suspect]
     Active Substance: RITUXIMAB
     Indication: PSORIATIC ARTHROPATHY
  2. TOCILIZUMAB. [Suspect]
     Active Substance: TOCILIZUMAB
     Indication: RHEUMATOID ARTHRITIS
     Route: 065
  3. ARAVA [Suspect]
     Active Substance: LEFLUNOMIDE
     Indication: RHEUMATOID ARTHRITIS
     Route: 048
  4. ERELZI [Suspect]
     Active Substance: ETANERCEPT-SZZS
     Indication: PSORIATIC ARTHROPATHY
     Route: 065
  5. FOSAMAX [Suspect]
     Active Substance: ALENDRONATE SODIUM
     Indication: PRODUCT USED FOR UNKNOWN INDICATION
     Route: 065
  6. LEFLUNOMIDE. [Suspect]
     Active Substance: LEFLUNOMIDE
     Indication: PSORIATIC ARTHROPATHY
     Route: 048
  7. LEFLUNOMIDE. [Suspect]
     Active Substance: LEFLUNOMIDE
     Route: 048
  8. METHOTREXATE. [Suspect]
     Active Substance: METHOTREXATE
     Route: 048
  9. METHOTREXATE. [Suspect]
     Active Substance: METHOTREXATE
     Route: 058
  10. MOTRIN [Suspect]
     Active Substance: IBUPROFEN
     Route: 048
  11. OTEZLA [Suspect]
     Active Substance: APREMILAST
     Indication: PSORIASIS
  12. SULFASALAZINE. [Suspect]
     Active Substance: SULFASALAZINE
     Indication: PSORIATIC ARTHROPATHY
     Route: 065
  13. FEBUXOSTAT. [Concomitant]
     Active Substance: FEBUXOSTAT
  14. XELJANZ [Concomitant]
     Active Substance: TOFACITINIB CITRATE
  15. NAPROXEN. [Concomitant]
     Active Substance: NAPROXEN
  16. CIMZIA [Suspect]
     Active Substance: CERTOLIZUMAB PEGOL
     Indication: PSORIATIC ARTHROPATHY
     Route: 058
  17. COSENTYX [Suspect]
     Active Substance: SECUKINUMAB
     Indication: PSORIATIC ARTHROPATHY
     Route: 065
  18. ERELZI [Suspect]
     Active Substance: ETANERCEPT-SZZS
     Indication: RHEUMATOID ARTHRITIS
     Route: 065
  19. LEFLUNOMIDE. [Suspect]
     Active Substance: LEFLUNOMIDE
     Route: 065
  20. METHOTREXATE. [Suspect]
     Active Substance: METHOTREXATE
     Route: 048
  21. MOTRIN [Suspect]
     Active Substance: IBUPROFEN
     Indication: PRODUCT USED FOR UNKNOWN INDICATION
     Route: 048
  22. MOTRIN [Suspect]
     Active Substance: IBUPROFEN
     Route: 048
  23. OXYNEO [Concomitant]
     Active Substance: OXYCODONE
  24. CELEBREX [Suspect]
     Active Substance: CELECOXIB
     Indication: ADENOMATOUS POLYPOSIS COLI
     Route: 048
  25. CODEINE [Suspect]
     Active Substance: CODEINE
     Indication: PRODUCT USED FOR UNKNOWN INDICATION
     Route: 065
  26. ENBREL [Suspect]
     Active Substance: ETANERCEPT
     Indication: RHEUMATOID ARTHRITIS
     Route: 065
  27. LEFLUNOMIDE. [Suspect]
     Active Substance: LEFLUNOMIDE
     Route: 048
  28. METHOTREXATE. [Suspect]
     Active Substance: METHOTREXATE
     Indication: RHEUMATOID ARTHRITIS
     Route: 058
  29. BENADRYL [Concomitant]
     Active Substance: DIPHENHYDRAMINE HYDROCHLORIDE
  30. RISEDRONATE SODIUM. [Concomitant]
     Active Substance: RISEDRONATE SODIUM
  31. MOTRIN [Suspect]
     Active Substance: IBUPROFEN
     Route: 048
  32. STELARA [Suspect]
     Active Substance: USTEKINUMAB
     Indication: PSORIATIC ARTHROPATHY
     Route: 048
  33. SULFASALAZINE. [Suspect]
     Active Substance: SULFASALAZINE
     Indication: RHEUMATOID ARTHRITIS
     Route: 065
  34. APREMILAST [Suspect]
     Active Substance: APREMILAST
     Indication: RHEUMATOID ARTHRITIS
     Route: 065
  35. APREMILAST [Suspect]
     Active Substance: APREMILAST
     Indication: PSORIASIS
     Route: 065
  36. CANNABIS SATIVA [Concomitant]
     Active Substance: CANNABIS SATIVA FLOWERING TOP
  37. CHOLECALCIFEROL [Concomitant]
     Active Substance: CHOLECALCIFEROL
  38. MOGADON [Concomitant]
     Active Substance: NITRAZEPAM
  39. OXYCODONE HYDROCHLORIDE. [Concomitant]
     Active Substance: OXYCODONE HYDROCHLORIDE
  40. SIMPONI [Suspect]
     Active Substance: GOLIMUMAB
     Indication: PSORIATIC ARTHROPATHY
     Route: 058
  41. NITRAZEPAM [Concomitant]
     Active Substance: NITRAZEPAM
  42. CICLOSPORIN [Suspect]
     Active Substance: CYCLOSPORINE
     Indication: PSORIATIC ARTHROPATHY
     Route: 048
  43. MOTRIN [Suspect]
     Active Substance: IBUPROFEN
     Route: 065
  44. ORENCIA [Suspect]
     Active Substance: ABATACEPT
     Indication: PSORIATIC ARTHROPATHY
     Route: 065
  45. OTEZLA [Suspect]
     Active Substance: APREMILAST
     Indication: RHEUMATOID ARTHRITIS
     Route: 048
  46. OTEZLA [Suspect]
     Active Substance: APREMILAST
     Indication: PSORIATIC ARTHROPATHY
     Route: 065
  47. REMICADE [Suspect]
     Active Substance: INFLIXIMAB
     Route: 042
  48. DEXILANT [Concomitant]
     Active Substance: DEXLANSOPRAZOLE
  49. METHOTREXATE. [Concomitant]
     Active Substance: METHOTREXATE
  50. RITUXIMAB. [Suspect]
     Active Substance: RITUXIMAB
     Indication: PSORIATIC ARTHROPATHY
  51. CERTOLIZUMAB PEGOL [Suspect]
     Active Substance: CERTOLIZUMAB PEGOL
     Indication: PSORIATIC ARTHROPATHY
     Route: 058
  52. CICLOSPORIN [Suspect]
     Active Substance: CYCLOSPORINE
     Route: 065
  53. ENBREL [Suspect]
     Active Substance: ETANERCEPT
     Indication: PSORIATIC ARTHROPATHY
     Route: 058
  54. HUMIRA [Suspect]
     Active Substance: ADALIMUMAB
     Indication: PSORIATIC ARTHROPATHY
     Route: 058
  55. HYDROXYCHLOROQUINE SULFATE. [Suspect]
     Active Substance: HYDROXYCHLOROQUINE SULFATE
     Indication: RHEUMATOID ARTHRITIS
     Route: 065
  56. IBUPROFEN. [Suspect]
     Active Substance: IBUPROFEN
     Indication: PRODUCT USED FOR UNKNOWN INDICATION
     Route: 065
  57. METHOTREXATE. [Suspect]
     Active Substance: METHOTREXATE
     Route: 058
  58. ORENCIA [Suspect]
     Active Substance: ABATACEPT
     Indication: RHEUMATOID ARTHRITIS
     Route: 058
  59. REMICADE [Suspect]
     Active Substance: INFLIXIMAB
     Indication: PRODUCT USED FOR UNKNOWN INDICATION
     Route: 058
  60. STELARA [Suspect]
     Active Substance: USTEKINUMAB
     Route: 058
  61. SULFAMETHOXAZOLE [Suspect]
     Active Substance: SULFAMETHOXAZOLE
     Indication: PRODUCT USED FOR UNKNOWN INDICATION
     Route: 048
  62. APREMILAST [Suspect]
     Active Substance: APREMILAST
     Indication: PSORIATIC ARTHROPATHY
     Route: 065
  63. COLCHICINE. [Concomitant]
     Active Substance: COLCHICINE
  64. ULORIC [Concomitant]
     Active Substance: FEBUXOSTAT
  65. RITUXIMAB. [Suspect]
     Active Substance: RITUXIMAB
     Indication: RHEUMATOID ARTHRITIS
     Route: 065
  66. RITUXIMAB. [Suspect]
     Active Substance: RITUXIMAB
     Indication: RHEUMATOID ARTHRITIS
     Route: 042
  67. REMICADE [Suspect]
     Active Substance: INFLIXIMAB
     Indication: PSORIATIC ARTHROPATHY
     Route: 042
  68. APREMILAST [Suspect]
     Active Substance: APREMILAST
     Route: 048
  69. FOLIC ACID. [Concomitant]
     Active Substance: FOLIC ACID
  70. GRAVOL [Concomitant]
     Active Substance: DIMENHYDRINATE
  71. OXYCODONE [Concomitant]
     Active Substance: OXYCODONE
  72. PREDNISONE. [Concomitant]
     Active Substance: PREDNISONE

REACTIONS (54)
  - Arthropathy [Not Recovered/Not Resolved]
  - Pain [Not Recovered/Not Resolved]
  - Synovitis [Not Recovered/Not Resolved]
  - Arthritis [Not Recovered/Not Resolved]
  - Drug hypersensitivity [Not Recovered/Not Resolved]
  - Fatigue [Not Recovered/Not Resolved]
  - Joint injury [Not Recovered/Not Resolved]
  - Rheumatoid nodule [Not Recovered/Not Resolved]
  - Basal cell carcinoma [Not Recovered/Not Resolved]
  - Blood parathyroid hormone decreased [Not Recovered/Not Resolved]
  - Off label use [Unknown]
  - Decreased appetite [Not Recovered/Not Resolved]
  - Fear of injection [Not Recovered/Not Resolved]
  - Infusion related reaction [Not Recovered/Not Resolved]
  - Nausea [Not Recovered/Not Resolved]
  - Panniculitis [Not Recovered/Not Resolved]
  - Red blood cell sedimentation rate [Not Recovered/Not Resolved]
  - Skin ulcer [Not Recovered/Not Resolved]
  - Tongue disorder [Not Recovered/Not Resolved]
  - Blood creatinine increased [Not Recovered/Not Resolved]
  - C-reactive protein abnormal [Not Recovered/Not Resolved]
  - Contraindicated product administered [Not Recovered/Not Resolved]
  - Hypercalcaemia [Not Recovered/Not Resolved]
  - Peripheral swelling [Not Recovered/Not Resolved]
  - Red blood cell sedimentation rate increased [Not Recovered/Not Resolved]
  - Rheumatoid arthritis [Not Recovered/Not Resolved]
  - Alanine aminotransferase abnormal [Not Recovered/Not Resolved]
  - Arthralgia [Not Recovered/Not Resolved]
  - Treatment failure [Unknown]
  - Drug intolerance [Not Recovered/Not Resolved]
  - Erythema [Not Recovered/Not Resolved]
  - Skin necrosis [Not Recovered/Not Resolved]
  - Product use issue [Unknown]
  - Diarrhoea [Not Recovered/Not Resolved]
  - Loss of personal independence in daily activities [Not Recovered/Not Resolved]
  - Tenosynovitis [Not Recovered/Not Resolved]
  - Ulcer [Not Recovered/Not Resolved]
  - Aspartate aminotransferase increased [Not Recovered/Not Resolved]
  - Drug eruption [Not Recovered/Not Resolved]
  - Enthesopathy [Not Recovered/Not Resolved]
  - General physical health deterioration [Not Recovered/Not Resolved]
  - Inflammation [Not Recovered/Not Resolved]
  - Insomnia [Not Recovered/Not Resolved]
  - Joint swelling [Not Recovered/Not Resolved]
  - Psoriatic arthropathy [Not Recovered/Not Resolved]
  - Tendonitis [Not Recovered/Not Resolved]
  - Urticaria [Not Recovered/Not Resolved]
  - Abdominal discomfort [Not Recovered/Not Resolved]
  - Alanine aminotransferase increased [Not Recovered/Not Resolved]
  - Blood pressure systolic increased [Not Recovered/Not Resolved]
  - Therapy non-responder [Not Recovered/Not Resolved]
  - Granuloma skin [Not Recovered/Not Resolved]
  - Musculoskeletal stiffness [Not Recovered/Not Resolved]
  - Rash [Not Recovered/Not Resolved]
